FAERS Safety Report 8834589 (Version 1)
Quarter: 2012Q4

REPORT INFORMATION
  Report Type: 
  Country: US (occurrence: US)
  Receive Date: 20121010
  Receipt Date: 20121010
  Transmission Date: 20130627
  Serious: No
  Sender: FDA-Public Use
  Company Number: US-PFIZER INC-2012250629

PATIENT
  Age: 33 Year
  Sex: Female
  Weight: 68.03 kg

DRUGS (3)
  1. PRISTIQ [Suspect]
     Indication: ANXIETY
     Dosage: UNK, daily in night
     Dates: start: 2011, end: 201210
  2. PRISTIQ [Suspect]
     Indication: DEPRESSION
  3. PRISTIQ [Suspect]
     Indication: HOT FLUSH

REACTIONS (9)
  - Drug withdrawal syndrome [Unknown]
  - Malaise [Unknown]
  - Depression [Unknown]
  - Hot flush [Unknown]
  - Crying [Unknown]
  - Feeling abnormal [Unknown]
  - Dizziness [Unknown]
  - Lethargy [Unknown]
  - Pain [Unknown]
